FAERS Safety Report 5150888-4 (Version None)
Quarter: 2006Q4

REPORT INFORMATION
  Report Type: 
  Country: None (occurrence: None)
  Receive Date: 20061114
  Receipt Date: 20061103
  Transmission Date: 20070319
  Serious: Yes (Death)
  Sender: FDA-Public Use
  Company Number: IN-ELI_LILLY_AND_COMPANY-IN200611001011

PATIENT
  Age: 51 Year
  Sex: Male
  Weight: 90 kg

DRUGS (2)
  1. XIGRIS [Suspect]
     Indication: SEPSIS
  2. ANTIBIOTICS [Concomitant]
     Indication: INFECTION
     Dosage: UNK, UNKNOWN
     Route: 065

REACTIONS (4)
  - EPISTAXIS [None]
  - HAEMORRHAGE [None]
  - HYPOTENSION [None]
  - LUNG DISORDER [None]
